FAERS Safety Report 6068422-3 (Version None)
Quarter: 2009Q1

REPORT INFORMATION
  Report Type: 
  Country: None (occurrence: None)
  Receive Date: 20090203
  Receipt Date: 20090121
  Transmission Date: 20090719
  Serious: Yes (Other)
  Sender: FDA-Public Use
  Company Number: 2009MB000009

PATIENT
  Age: 46 Year
  Sex: Male

DRUGS (3)
  1. CEPHALEXIN [Suspect]
     Indication: NEUTROPENIA
  2. CEPHALEXIN [Suspect]
     Indication: THROMBOCYTOPENIA
  3. DEXAMETHASONE W/CYTOSINE ARABINOSIDE W/CISPLATIN (NO PREF. NAME) [Suspect]
     Indication: B-CELL LYMPHOMA STAGE II

REACTIONS (9)
  - AUTOLOGOUS BONE MARROW TRANSPLANTATION THERAPY [None]
  - BLOOD CREATININE INCREASED [None]
  - BLOOD UREA INCREASED [None]
  - LEUKAEMIA RECURRENT [None]
  - NEUTROPENIA [None]
  - PYREXIA [None]
  - RENAL IMPAIRMENT [None]
  - THROMBOCYTOPENIA [None]
  - THROMBOTIC MICROANGIOPATHY [None]
